FAERS Safety Report 4296513-6 (Version None)
Quarter: 2004Q1

REPORT INFORMATION
  Report Type: 
  Country: None (occurrence: None)
  Receive Date: 20040126
  Receipt Date: 20030827
  Transmission Date: 20041129
  Serious: No
  Sender: FDA-Public Use
  Company Number: USA030844823

PATIENT
  Age: 8 Year
  Sex: Male

DRUGS (2)
  1. STRATTERA [Suspect]
     Indication: ATTENTION DEFICIT/HYPERACTIVITY DISORDER
     Dosage: 10 MG
  2. PROZAC [Suspect]
     Indication: INTERMITTENT EXPLOSIVE DISORDER
     Dosage: 10 MG/DAY
     Dates: start: 20030601

REACTIONS (5)
  - CHOKING [None]
  - DRUG INEFFECTIVE [None]
  - IRRITABILITY [None]
  - MANIA [None]
  - RETCHING [None]
